FAERS Safety Report 7289382-3 (Version None)
Quarter: 2011Q1

REPORT INFORMATION
  Report Type: 
  Country: None (occurrence: None)
  Receive Date: 20110211
  Receipt Date: 20110207
  Transmission Date: 20110831
  Serious: Yes (Other)
  Sender: FDA-Public Use
  Company Number: FR-PFIZER INC-2011026613

PATIENT
  Age: 37 Year
  Sex: Female

DRUGS (4)
  1. NEURONTIN [Suspect]
     Dosage: 400 MG, DAILY
     Dates: start: 20101101, end: 20101201
  2. ZELITREX [Concomitant]
     Indication: TOOTH DISORDER
  3. BIRODOGYL [Concomitant]
     Indication: TOOTH DISORDER
  4. NEURONTIN [Suspect]
     Indication: SOMNAMBULISM
     Dosage: 300 MG, DAILY
     Dates: start: 20101001, end: 20101101

REACTIONS (1)
  - HENOCH-SCHONLEIN PURPURA [None]
